FAERS Safety Report 8260221-7 (Version None)
Quarter: 2012Q2

REPORT INFORMATION
  Report Type: 
  Country: None (occurrence: None)
  Receive Date: 20120404
  Receipt Date: 20120326
  Transmission Date: 20120825
  Serious: Yes (Hospitalization)
  Sender: FDA-Public Use
  Company Number: DE-ELI_LILLY_AND_COMPANY-DE201203007218

PATIENT
  Sex: Female

DRUGS (1)
  1. BYDUREON [Suspect]
     Dosage: 2 MG, WEEKLY (1/W)
     Route: 058
     Dates: start: 20120309

REACTIONS (5)
  - NODULE [None]
  - ERYTHEMA [None]
  - EYE INFLAMMATION [None]
  - INJECTION SITE ERYTHEMA [None]
  - SWELLING [None]
